FAERS Safety Report 13616478 (Version 1)
Quarter: 2017Q2

REPORT INFORMATION
  Report Type: Spontaneous
  Country: US (occurrence: US)
  Receive Date: 20170606
  Receipt Date: 20170606
  Transmission Date: 20170830
  Serious: Yes (Other)
  Sender: FDA-Public Use
  Company Number: US-AKORN PHARMACEUTICALS-2017AKN00724

PATIENT
  Age: 17 Year
  Sex: Female
  Weight: 61.22 kg

DRUGS (4)
  1. PROBIOTIC (UNSPECIFIED) [Concomitant]
  2. MULTIVITAMIN (UNSPECIFIED) [Concomitant]
     Active Substance: VITAMINS
  3. MYORISAN [Suspect]
     Active Substance: ISOTRETINOIN
     Indication: ACNE
     Dosage: 40 MG, EVERY 48 HOURS
     Route: 048
     Dates: start: 20170406, end: 20170412
  4. MYORISAN [Suspect]
     Active Substance: ISOTRETINOIN
     Dosage: 80 MG, EVERY 48 HOURS
     Route: 048
     Dates: start: 20170406, end: 20170412

REACTIONS (3)
  - Emotional disorder [Unknown]
  - Stress [Recovered/Resolved]
  - Anxiety [Recovered/Resolved]

NARRATIVE: CASE EVENT DATE: 201704
